FAERS Safety Report 7391803-2 (Version None)
Quarter: 2011Q2

REPORT INFORMATION
  Report Type: 
  Country: None (occurrence: None)
  Receive Date: 20110404
  Receipt Date: 20110329
  Transmission Date: 20111010
  Serious: Yes (Death, Hospitalization)
  Sender: FDA-Public Use
  Company Number: US-ROCHE-762962

PATIENT
  Sex: Male
  Weight: 47.6 kg

DRUGS (11)
  1. BEVACIZUMAB [Suspect]
     Indication: NON-SMALL CELL LUNG CANCER
     Dosage: MOST RECENT DOSE: 14 FEBRUARY 2011
     Route: 042
     Dates: start: 20110103
  2. ATENOLOL [Concomitant]
     Indication: HYPERTENSION
     Dates: start: 20060101
  3. PERCOCET [Concomitant]
     Dates: start: 20101201
  4. CARBOPLATIN [Suspect]
     Indication: NON-SMALL CELL LUNG CANCER
     Dosage: MOST RECENT DOSE: 3 JANUARY 2011, DOSE: AUG5
     Route: 042
     Dates: start: 20110103
  5. HYDRALAZINE HCL [Concomitant]
     Indication: HYPERTENSION
     Dates: start: 20080101
  6. PEMETREXED [Suspect]
     Indication: NON-SMALL CELL LUNG CANCER
     Dosage: MOST RECENT DOSE: 3 JANUARY 2011
     Route: 042
     Dates: start: 20110103
  7. LISINOPRIL [Concomitant]
     Indication: HYPERTENSION
     Dates: start: 19800101
  8. SIMVASTATIN [Concomitant]
     Indication: HYPERCHOLESTEROLAEMIA
     Dates: start: 20020101
  9. DILANTIN [Concomitant]
     Dosage: FREQ: EVERY 4-6 HRS
     Dates: start: 20110101
  10. NIFEDIPINE [Concomitant]
     Indication: HYPERTENSION
     Dates: start: 19950101
  11. HYDROCHLOROTHIAZIDE [Concomitant]
     Dates: start: 20080101

REACTIONS (2)
  - HYPOTENSION [None]
  - CONVULSION [None]
